FAERS Safety Report 7279042-7 (Version None)
Quarter: 2011Q1

REPORT INFORMATION
  Report Type: 
  Country: None (occurrence: None)
  Receive Date: 20110207
  Receipt Date: 20110131
  Transmission Date: 20110831
  Serious: Yes (Death, Other)
  Sender: FDA-Public Use
  Company Number: PHHY2009DK57875

PATIENT
  Sex: Female

DRUGS (2)
  1. ZOMETA [Suspect]
     Indication: METASTASES TO BONE
     Dosage: 4 MG EVERY 3 WEEKS
     Route: 042
     Dates: start: 20080201, end: 20080901
  2. ZOMETA [Suspect]
     Indication: RENAL CANCER METASTATIC

REACTIONS (4)
  - OSTEONECROSIS OF JAW [None]
  - RENAL CANCER METASTATIC [None]
  - BONE DISORDER [None]
  - IMPAIRED HEALING [None]
